FAERS Safety Report 9174757 (Version 1)
Quarter: 2013Q1

REPORT INFORMATION
  Report Type: Spontaneous
  Country: CA (occurrence: CA)
  Receive Date: 20130320
  Receipt Date: 20130320
  Transmission Date: 20140127
  Serious: Yes (Disabling)
  Sender: FDA-Public Use
  Company Number: CA-ASTRAZENECA-2013SE12565

PATIENT
  Age: 56 Year
  Sex: Female
  Weight: 46.7 kg

DRUGS (1)
  1. CRESTOR [Suspect]
     Indication: DYSLIPIDAEMIA
     Route: 048
     Dates: start: 20130214, end: 20130221

REACTIONS (1)
  - Hemiparesis [Not Recovered/Not Resolved]
